FAERS Safety Report 17395826 (Version 3)
Quarter: 2020Q2

REPORT INFORMATION
  Report Type: Spontaneous
  Country: RO (occurrence: RO)
  Receive Date: 20200210
  Receipt Date: 20200501
  Transmission Date: 20200713
  Serious: Yes (Hospitalization, Other)
  Sender: FDA-Public Use
  Company Number: NVSC2020RO033115

PATIENT
  Age: 51 Year
  Sex: Female

DRUGS (14)
  1. ZARZIO [Suspect]
     Active Substance: FILGRASTIM
     Indication: CHEMOTHERAPY
     Dosage: 30 IU, 30,000 IU/M2 TOTAL DOSE (5 DAYS)
     Route: 065
     Dates: start: 20180605, end: 20180607
  2. DOXORUBICIN [Suspect]
     Active Substance: DOXORUBICIN
     Dosage: 30 MG, 300 MG/M2 MG (DAY 1 +2+3)
     Route: 065
     Dates: start: 20180315, end: 20180317
  3. MESNA. [Suspect]
     Active Substance: MESNA
     Indication: LIPOSARCOMA
     Dosage: 7400 MG/M2, TOTAL DOSE
     Route: 065
     Dates: start: 2018
  4. DOXORUBICIN [Suspect]
     Active Substance: DOXORUBICIN
     Indication: CHEMOTHERAPY
     Dosage: 300 MG/M2
     Route: 065
  5. IFOSFAMIDE. [Suspect]
     Active Substance: IFOSFAMIDE
     Dosage: 2000 MG, IFOSFAMIDA (DAY 1+2)
     Route: 065
     Dates: start: 20180515, end: 20180516
  6. DOXORUBICIN [Suspect]
     Active Substance: DOXORUBICIN
     Dosage: 300 MG/M2 MG
     Route: 065
     Dates: start: 20180605, end: 20180607
  7. IFOSFAMIDE. [Suspect]
     Active Substance: IFOSFAMIDE
     Indication: LIPOSARCOMA
     Dosage: 7400 MG/M2, TOTAL DOSE
     Route: 065
     Dates: start: 2018
  8. MESNA. [Suspect]
     Active Substance: MESNA
     Dosage: 2400 MG, MESNA 2400MG
     Route: 065
     Dates: start: 20180605, end: 20180607
  9. ZARZIO [Suspect]
     Active Substance: FILGRASTIM
     Indication: LIPOSARCOMA
     Dosage: 30000 IU/M2, TOTAL DOSE
     Route: 065
     Dates: start: 2018
  10. IFOSFAMIDE. [Suspect]
     Active Substance: IFOSFAMIDE
     Indication: CHEMOTHERAPY
     Dosage: 1000 MG, IFOSFAMIDA 1000 MG (DAY 3)
     Route: 065
     Dates: start: 20180517, end: 20180517
  11. IFOSFAMIDE. [Suspect]
     Active Substance: IFOSFAMIDE
     Dosage: 2400 MG, IFOSFAMIDA
     Route: 065
     Dates: start: 20180605, end: 20180607
  12. MESNA. [Suspect]
     Active Substance: MESNA
     Indication: CHEMOTHERAPY
     Dosage: 1000 MG, MESNA 1000MG (DAY 3)
     Route: 065
     Dates: start: 20180517, end: 20180517
  13. DOXORUBICIN [Suspect]
     Active Substance: DOXORUBICIN
     Indication: LIPOSARCOMA
     Dosage: 120 MG/M2, TOTAL DOSE
     Route: 065
     Dates: start: 2018
  14. MESNA. [Suspect]
     Active Substance: MESNA
     Dosage: 2000 MG, MESNA 2000MG (DAY 1+2 )
     Route: 065
     Dates: start: 20180515, end: 20180516

REACTIONS (1)
  - Cardiac failure acute [Not Recovered/Not Resolved]
